FAERS Safety Report 9523938 (Version 1)
Quarter: 2013Q3

REPORT INFORMATION
  Report Type: Spontaneous
  Country: US (occurrence: None)
  Receive Date: 20130912
  Receipt Date: 20130912
  Transmission Date: 20140515
  Serious: Yes (Other)
  Sender: FDA-Public Use
  Company Number: None

PATIENT
  Age: 9 Year
  Sex: Male
  Weight: 25.4 kg

DRUGS (1)
  1. ABILIFY [Suspect]
     Dosage: 5 MG DAILY  ?1 WEEK AGO

REACTIONS (3)
  - Somnolence [None]
  - Nausea [None]
  - Vomiting [None]
